FAERS Safety Report 5951190-0 (Version None)
Quarter: 2008Q4

REPORT INFORMATION
  Report Type: 
  Country: None (occurrence: None)
  Receive Date: 20081113
  Receipt Date: 20081106
  Transmission Date: 20090506
  Serious: Yes (Other)
  Sender: FDA-Public Use
  Company Number: JP-ASTRAZENECA-2008AP08690

PATIENT
  Age: 32 Year
  Sex: Female
  Weight: 50 kg

DRUGS (4)
  1. DIPRIVAN [Suspect]
     Indication: MAINTENANCE OF ANAESTHESIA
     Dosage: DOSE UNKNOWN
     Route: 042
  2. REMIFENTANIL HYDROCHLORIDE [Concomitant]
     Indication: MAINTENANCE OF ANAESTHESIA
     Dosage: DOSE UNKNOWN
     Route: 041
  3. MIDAZOLAM HCL [Concomitant]
     Route: 042
  4. SUXAMETHONIUM CHLORIDE [Concomitant]
     Route: 042

REACTIONS (1)
  - OXYGEN SATURATION DECREASED [None]
